FAERS Safety Report 8263151-X (Version None)
Quarter: 2012Q2

REPORT INFORMATION
  Report Type: 
  Country: None (occurrence: None)
  Receive Date: 20120405
  Receipt Date: 20120326
  Transmission Date: 20120825
  Serious: Yes (Other)
  Sender: FDA-Public Use
  Company Number: US-ALEXION-A201100360

PATIENT
  Sex: Female

DRUGS (3)
  1. SOLIRIS [Suspect]
     Dosage: 900 MG, Q2W
     Route: 042
     Dates: start: 20100101
  2. SOLIRIS [Suspect]
     Indication: PAROXYSMAL NOCTURNAL HAEMOGLOBINURIA
     Dosage: QWEEK
     Route: 042
     Dates: start: 20100920
  3. AROMASIN [Concomitant]
     Indication: BREAST CANCER
     Dosage: UNK

REACTIONS (1)
  - BREAST CANCER STAGE II [None]
